FAERS Safety Report 4718765-8 (Version None)
Quarter: 2005Q3

REPORT INFORMATION
  Report Type: 
  Country: None (occurrence: None)
  Receive Date: 20050719
  Receipt Date: 20050701
  Transmission Date: 20060218
  Serious: Yes (Death)
  Sender: FDA-Public Use
  Company Number: USA0507101839

PATIENT
  Sex: Male

DRUGS (1)
  1. HUMATROPE [Suspect]

REACTIONS (1)
  - BRAIN NEOPLASM [None]
